FAERS Safety Report 4504187-1 (Version None)
Quarter: 2004Q4

REPORT INFORMATION
  Report Type: 
  Country: None (occurrence: None)
  Receive Date: 20041118
  Receipt Date: 20041022
  Transmission Date: 20050328
  Serious: Yes (Other)
  Sender: FDA-Public Use
  Company Number: US-JNJFOC-20041002813

PATIENT
  Age: 81 Year
  Sex: Female
  Weight: 52.16 kg

DRUGS (9)
  1. DITROPAN XL [Suspect]
     Dosage: PM DOSE.
     Route: 049
  2. DITROPAN XL [Suspect]
     Indication: DRUG USE FOR UNKNOWN INDICATION
     Dosage: AM DOSE
     Route: 049
  3. TIZANIDINE [Concomitant]
  4. DICYCLOMINE [Concomitant]
  5. OCUVITE [Concomitant]
  6. OCUVITE [Concomitant]
  7. OCUVITE [Concomitant]
  8. LUTEIN [Concomitant]
  9. ALPRAZOLAM [Concomitant]

REACTIONS (2)
  - MACULAR DEGENERATION [None]
  - MEDICATION ERROR [None]
